FAERS Safety Report 6847932-2 (Version None)
Quarter: 2010Q3

REPORT INFORMATION
  Report Type: 
  Country: None (occurrence: None)
  Receive Date: 20100716
  Receipt Date: 20100708
  Transmission Date: 20110219
  Serious: Yes (Hospitalization, Other)
  Sender: FDA-Public Use
  Company Number: US-PFIZER INC-2010040500

PATIENT
  Sex: Male

DRUGS (4)
  1. CHANTIX [Suspect]
     Indication: SMOKING CESSATION THERAPY
     Dosage: UNK
     Dates: start: 20070813, end: 20070902
  2. LEXAPRO [Concomitant]
     Indication: DEPRESSION
     Dosage: UNK
     Dates: start: 20020101
  3. TRILEPTAL [Concomitant]
     Indication: BIPOLAR DISORDER
     Dosage: UNK
     Dates: start: 20020101
  4. GEODON [Concomitant]
     Indication: SCHIZOPHRENIA
     Dosage: UNK
     Dates: start: 20020101

REACTIONS (10)
  - BACK INJURY [None]
  - CONVULSION [None]
  - LOSS OF CONSCIOUSNESS [None]
  - MENTAL DISORDER [None]
  - NECK INJURY [None]
  - RADICULOPATHY [None]
  - ROAD TRAFFIC ACCIDENT [None]
  - SPONDYLITIC MYELOPATHY [None]
  - SPONDYLOLISTHESIS [None]
  - TRAUMATIC BRAIN INJURY [None]
